FAERS Safety Report 8322219-X (Version None)
Quarter: 2012Q2

REPORT INFORMATION
  Report Type: 
  Country: None (occurrence: None)
  Receive Date: 20120430
  Receipt Date: 20120416
  Transmission Date: 20120825
  Serious: No
  Sender: FDA-Public Use
  Company Number: US-COVIDIEN/TYCO HEALTHCARE/MALLINCKRODT-T201201463

PATIENT
  Sex: Female
  Weight: 49.887 kg

DRUGS (4)
  1. GLUCOPHAGE [Concomitant]
     Indication: POLYCYSTIC OVARIES
     Dosage: UNK
  2. VITAMIN A                          /00056001/ [Concomitant]
     Indication: SUPPLEMENTATION THERAPY
     Dosage: UNK
  3. VITAMIN D [Concomitant]
     Indication: SUPPLEMENTATION THERAPY
     Dosage: UNK
  4. HYDROCODONE BITARTRATE + ACETAMINOPHEN [Suspect]
     Indication: NECK PAIN
     Dosage: 1 TABLET TID, PRN
     Dates: start: 20120101, end: 20120201

REACTIONS (1)
  - MIGRAINE [None]
